FAERS Safety Report 8662509 (Version 2)
Quarter: 2012Q4

REPORT INFORMATION
  Report Type: 
  Country: US (occurrence: US)
  Receive Date: 20120712
  Receipt Date: 20120830
  Transmission Date: 20130627
  Serious: No
  Sender: FDA-Public Use
  Company Number: US-PFIZER INC-2012164974

PATIENT
  Sex: Female
  Weight: 58 kg

DRUGS (3)
  1. QUINAPRIL HCL [Suspect]
     Dosage: UNK
  2. LEVAQUIN [Suspect]
     Dosage: UNK
  3. DEMEROL [Suspect]
     Dosage: UNK

REACTIONS (1)
  - Drug hypersensitivity [Unknown]
